FAERS Safety Report 5158370-5 (Version None)
Quarter: 2006Q4

REPORT INFORMATION
  Report Type: 
  Country: None (occurrence: None)
  Receive Date: 20061128
  Receipt Date: 20060615
  Transmission Date: 20070319
  Serious: No
  Sender: FDA-Public Use
  Company Number: US-GLAXOSMITHKLINE-A0609485A

PATIENT
  Age: 71 Year
  Sex: Male

DRUGS (4)
  1. LANOXIN [Suspect]
     Indication: ATRIAL FIBRILLATION
     Route: 048
  2. ALTACE [Concomitant]
  3. PREVACID [Concomitant]
  4. PRAVACHOL [Concomitant]

REACTIONS (2)
  - ERECTILE DYSFUNCTION [None]
  - HYPOTENSION [None]
